FAERS Safety Report 25686101 (Version 1)
Quarter: 2025Q3

REPORT INFORMATION
  Report Type: Spontaneous
  Country: CN (occurrence: CN)
  Receive Date: 20250815
  Receipt Date: 20250815
  Transmission Date: 20251021
  Serious: Yes (Hospitalization, Disabling)
  Sender: KYOWA
  Company Number: CN-KYOWAKIRIN-2025KK015671

PATIENT

DRUGS (1)
  1. TOREMIFENE [Suspect]
     Active Substance: TOREMIFENE
     Indication: Breast cancer
     Dosage: 1 DOSAGE FORM (1 DOSAGE FORM,1 IN 1 D)
     Route: 048
     Dates: start: 20250103, end: 20250715

REACTIONS (4)
  - Endometrial thickening [Unknown]
  - Uterine leiomyoma [Unknown]
  - Amenorrhoea [Unknown]
  - Product use issue [Unknown]

NARRATIVE: CASE EVENT DATE: 20250103
